FAERS Safety Report 6516894-X (Version None)
Quarter: 2009Q4

REPORT INFORMATION
  Report Type: 
  Country: None (occurrence: None)
  Receive Date: 20091223
  Receipt Date: 20091215
  Transmission Date: 20100525
  Serious: Yes (Other)
  Sender: FDA-Public Use
  Company Number: US-JNJCH-2009032621

PATIENT
  Age: 3 Year
  Sex: Female
  Weight: 15.9 kg

DRUGS (2)
  1. LISTERINE AGENT COOL BLUE GLACIER MINT [Suspect]
     Indication: ACCIDENTAL EXPOSURE
     Dosage: TEXT:UNSPECIFIED ONCE
     Route: 048
     Dates: start: 20091214, end: 20091214
  2. LORATADINE [Concomitant]
     Indication: SEASONAL ALLERGY
     Dosage: TEXT:1/2 TABLET DAILY
     Route: 048

REACTIONS (2)
  - ACCIDENTAL EXPOSURE [None]
  - DIARRHOEA [None]
